FAERS Safety Report 12917059 (Version 3)
Quarter: 2016Q4

REPORT INFORMATION
  Report Type: Spontaneous
  Country: US (occurrence: US)
  Receive Date: 20161107
  Receipt Date: 20161220
  Transmission Date: 20170207
  Serious: No
  Sender: FDA-Public Use
  Company Number: US-PFIZER INC-2016510207

PATIENT
  Sex: Male
  Weight: 38.56 kg

DRUGS (12)
  1. QUILLIVANT XR [Suspect]
     Active Substance: METHYLPHENIDATE HYDROCHLORIDE
     Dosage: 8 ML, 1X/DAY (WOULD GET A BUMP UP OF 2ML IN AFTERNOON WHEN HE HAD A LOT OF HOMEWORK)
     Route: 048
     Dates: start: 2016, end: 2016
  2. FERRITIN [Concomitant]
     Active Substance: FERRITIN
     Indication: POOR QUALITY SLEEP
  3. QUILLIVANT XR [Suspect]
     Active Substance: METHYLPHENIDATE HYDROCHLORIDE
     Dosage: 11 ML, 1X/DAY
     Route: 048
     Dates: start: 2016, end: 201608
  4. VITAMIN C [Concomitant]
     Active Substance: ASCORBIC ACID
     Indication: SUPPLEMENTATION THERAPY
     Dosage: 250 MG, 1X/DAY
     Route: 048
  5. QUILLIVANT XR [Suspect]
     Active Substance: METHYLPHENIDATE HYDROCHLORIDE
     Dosage: 9 ML, 1X/DAY
     Route: 048
     Dates: start: 2016
  6. MELATONIN [Concomitant]
     Active Substance: MELATONIN
     Indication: RESTLESS LEGS SYNDROME
     Dosage: 3 MG, AS NEEDED
     Route: 048
  7. MELATONIN [Concomitant]
     Active Substance: MELATONIN
     Indication: POOR QUALITY SLEEP
  8. VITAMIN D [Concomitant]
     Active Substance: CHOLECALCIFEROL
     Indication: VITAMIN D DECREASED
     Dosage: 2000 IU, DAILY
     Route: 048
  9. QUILLIVANT XR [Suspect]
     Active Substance: METHYLPHENIDATE HYDROCHLORIDE
     Dosage: 10 ML, 1X/DAY
     Route: 048
     Dates: start: 2016, end: 2016
  10. FERRITIN [Concomitant]
     Active Substance: FERRITIN
     Indication: RESTLESS LEGS SYNDROME
     Dosage: 1 DF, 1X/DAY
     Route: 048
  11. QUILLIVANT XR [Suspect]
     Active Substance: METHYLPHENIDATE HYDROCHLORIDE
     Indication: ATTENTION DEFICIT/HYPERACTIVITY DISORDER
     Dosage: 8 ML, 1X/DAY
     Route: 048
     Dates: start: 2016, end: 2016
  12. QUILLIVANT XR [Suspect]
     Active Substance: METHYLPHENIDATE HYDROCHLORIDE
     Dosage: UNK, (25MG/5ML)

REACTIONS (3)
  - Drug ineffective [Unknown]
  - Depressed mood [Unknown]
  - Drug effect delayed [Unknown]

NARRATIVE: CASE EVENT DATE: 2016
